FAERS Safety Report 9015806 (Version 1)
Quarter: 2013Q1

REPORT INFORMATION
  Report Type: Spontaneous
  Country: US (occurrence: None)
  Receive Date: 20130102
  Receipt Date: 20130102
  Transmission Date: 20140127
  Serious: Yes (Hospitalization)
  Sender: FDA-Public Use
  Company Number: DOXY20120008

PATIENT
  Age: 55 Year
  Sex: Female

DRUGS (1)
  1. DOXYCYCLINE HYCLATE [Suspect]
     Indication: CELLULITIS
     Route: 048
     Dates: start: 201103, end: 2011

REACTIONS (2)
  - Hallucination, visual [None]
  - Psychotic disorder [None]
